FAERS Safety Report 4288503-4 (Version None)
Quarter: 2004Q1

REPORT INFORMATION
  Report Type: 
  Country: None (occurrence: None)
  Receive Date: 20040205
  Receipt Date: 20040115
  Transmission Date: 20041129
  Serious: Yes (Other)
  Sender: FDA-Public Use
  Company Number: USA030127285

PATIENT
  Age: 50 Year
  Sex: Male
  Weight: 118 kg

DRUGS (6)
  1. HUMALOG [Suspect]
     Indication: DIABETES MELLITUS
     Dosage: 260 U/DAY
     Dates: start: 20020101
  2. HUMULIN 70/30 [Suspect]
     Indication: DIABETES MELLITUS
     Dates: start: 19970101
  3. HUMULIN R [Suspect]
     Indication: DIABETES MELLITUS
  4. HUMULIN N [Suspect]
     Indication: DIABETES MELLITUS
  5. GLUCOPHAGE XR (METFORMIN HYDROCHLORIDE) [Concomitant]
  6. LANTUS [Suspect]

REACTIONS (3)
  - BLINDNESS [None]
  - BLOOD GLUCOSE FLUCTUATION [None]
  - DIABETIC RETINOPATHY [None]
